FAERS Safety Report 13965959 (Version 2)
Quarter: 2017Q3

REPORT INFORMATION
  Report Type: Spontaneous
  Country: CA (occurrence: CA)
  Receive Date: 20170913
  Receipt Date: 20170922
  Transmission Date: 20171128
  Serious: Yes (Other)
  Sender: FDA-Public Use
  Company Number: CA-SA-2017SA020124

PATIENT
  Age: 32 Year
  Sex: Female

DRUGS (8)
  1. METHOTREXATE SODIUM. [Suspect]
     Active Substance: METHOTREXATE SODIUM
     Indication: RHEUMATOID ARTHRITIS
     Route: 042
  2. ENBREL [Suspect]
     Active Substance: ETANERCEPT
     Indication: RHEUMATOID ARTHRITIS
     Route: 058
     Dates: start: 201208, end: 201302
  3. REMICADE [Suspect]
     Active Substance: INFLIXIMAB
     Route: 065
     Dates: start: 201401
  4. ACTEMRA [Suspect]
     Active Substance: TOCILIZUMAB
     Indication: RHEUMATOID ARTHRITIS
     Route: 065
     Dates: start: 201308, end: 201312
  5. PLAQUENIL [Suspect]
     Active Substance: HYDROXYCHLOROQUINE SULFATE
     Indication: RHEUMATOID ARTHRITIS
     Route: 048
     Dates: start: 201412
  6. ARAVA [Suspect]
     Active Substance: LEFLUNOMIDE
     Indication: RHEUMATOID ARTHRITIS
     Route: 048
     Dates: start: 201501, end: 201502
  7. METHOTREXATE SODIUM. [Suspect]
     Active Substance: METHOTREXATE SODIUM
     Indication: RHEUMATOID ARTHRITIS
     Route: 065
     Dates: start: 201411
  8. HUMIRA [Suspect]
     Active Substance: ADALIMUMAB
     Indication: RHEUMATOID ARTHRITIS
     Dosage: FORM: SUBCUTAEOUS SOLUTION
     Route: 058
     Dates: start: 201302, end: 201308

REACTIONS (10)
  - Bone erosion [Unknown]
  - Investigation abnormal [Unknown]
  - Treatment failure [Unknown]
  - Arthralgia [Unknown]
  - Drug intolerance [Unknown]
  - Drug effect incomplete [Unknown]
  - Joint swelling [Unknown]
  - C-reactive protein abnormal [Unknown]
  - Therapy non-responder [Unknown]
  - Rheumatoid arthritis [Unknown]
